FAERS Safety Report 24270162 (Version 1)
Quarter: 2024Q3

REPORT INFORMATION
  Report Type: Spontaneous
  Country: US (occurrence: None)
  Receive Date: 20240829
  Receipt Date: 20240829
  Transmission Date: 20241017
  Serious: Yes (unspecified)
  Sender: Public
  Company Number: None

PATIENT
  Age: 5 Year
  Sex: Female

DRUGS (1)
  1. VYEPTI [Suspect]
     Active Substance: EPTINEZUMAB-JJMR
     Dates: start: 20240809

REACTIONS (5)
  - Urticaria [None]
  - Infusion related reaction [None]
  - Bronchospasm [None]
  - Pharyngeal disorder [None]
  - Cough [None]

NARRATIVE: CASE EVENT DATE: 20240809
